FAERS Safety Report 10526127 (Version 2)
Quarter: 2014Q4

REPORT INFORMATION
  Report Type: Spontaneous
  Country: CN (occurrence: CN)
  Receive Date: 20141017
  Receipt Date: 20141023
  Transmission Date: 20150528
  Serious: Yes (Life-Threatening)
  Sender: FDA-Public Use
  Company Number: CN-PFIZER INC-2014283423

PATIENT
  Age: 69 Year
  Sex: Male

DRUGS (12)
  1. NORVASC [Suspect]
     Active Substance: AMLODIPINE BESYLATE
     Indication: HYPERTENSION
     Dosage: 10 MG, 1X/DAY
     Dates: start: 20140219
  2. OMEPRAZOLE. [Suspect]
     Active Substance: OMEPRAZOLE
     Indication: STRESS ULCER
     Dosage: 40 MG, 1X/DAY
     Route: 042
     Dates: start: 20140213, end: 20140219
  3. OMEPRAZOLE. [Suspect]
     Active Substance: OMEPRAZOLE
     Dosage: 20 MG, 1X/DAY
     Dates: start: 20140219
  4. NIMODIPINE. [Concomitant]
     Active Substance: NIMODIPINE
     Indication: HYPERTENSION
     Dosage: 60 MG, 3X/DAY
     Route: 045
     Dates: start: 20140215, end: 20140322
  5. METAMIZOLE SODIUM [Suspect]
     Active Substance: METAMIZOLE SODIUM
     Indication: PYREXIA
     Dosage: 0.25 G, 1X/DAY
     Route: 030
     Dates: start: 20140221
  6. LEVAMLODIPINE BESYLATE [Suspect]
     Active Substance: LEVAMLODIPINE BESILATE
     Indication: HYPERTENSION
     Dosage: 2.5 MG, 1X/DAY
     Dates: start: 20140216
  7. INDOMETHACIN. [Suspect]
     Active Substance: INDOMETHACIN
     Indication: PYREXIA
     Dosage: 50 MG, 1X/DAY
     Route: 054
     Dates: start: 20140220
  8. HYDROCHLOROTHIAZIDE. [Concomitant]
     Active Substance: HYDROCHLOROTHIAZIDE
     Indication: DIURETIC THERAPY
     Dosage: 25 MG, 1X/DAY
     Route: 045
     Dates: start: 20140222, end: 20140310
  9. ENALAPRIL MALEATE. [Suspect]
     Active Substance: ENALAPRIL MALEATE
     Indication: HYPERTENSION
     Dosage: 10 MG, 1X/DAY
     Dates: start: 20140219
  10. SULPERAZON [Concomitant]
     Active Substance: CEFOPERAZONE SODIUM\SULBACTAM SODIUM
     Indication: INFECTION
     Dosage: 3 G, 3X/DAY
     Route: 042
     Dates: start: 20140304, end: 20140313
  11. AMBROXOL HYDROCHLORIDE [Concomitant]
     Active Substance: AMBROXOL HYDROCHLORIDE
     Indication: LUNG INFECTION
     Dosage: 30 MG, 3X/DAY
     Route: 042
     Dates: start: 20140213, end: 20140317
  12. OXIRACETAM [Concomitant]
     Active Substance: OXIRACETAM
     Indication: METABOLIC ABNORMALITY MANAGEMENT
     Dosage: 4 G, 1X/DAY
     Route: 042
     Dates: start: 20140219, end: 20140317

REACTIONS (1)
  - Stevens-Johnson syndrome [Not Recovered/Not Resolved]

NARRATIVE: CASE EVENT DATE: 20140310
